FAERS Safety Report 6563804-5 (Version None)
Quarter: 2010Q1

REPORT INFORMATION
  Report Type: 
  Country: None (occurrence: None)
  Receive Date: 20100130
  Receipt Date: 20091230
  Transmission Date: 20100710
  Serious: No
  Sender: FDA-Public Use
  Company Number: US-ABBOTT-10P-163-0617694-00

PATIENT
  Sex: Male

DRUGS (3)
  1. HUMIRA [Suspect]
     Indication: DRUG USE FOR UNKNOWN INDICATION
     Dosage: RECEIVED 3 INJECTIONS
  2. UNKNOWN MEDICATION [Suspect]
     Indication: DRUG USE FOR UNKNOWN INDICATION
  3. METHOTREXATE [Concomitant]
     Indication: DRUG USE FOR UNKNOWN INDICATION

REACTIONS (2)
  - OEDEMA PERIPHERAL [None]
  - WEIGHT INCREASED [None]
